FAERS Safety Report 21996782 (Version 2)
Quarter: 2023Q1

REPORT INFORMATION
  Report Type: Other
  Country: None (occurrence: GB)
  Receive Date: 20230215
  Receipt Date: 20230224
  Transmission Date: 20230418
  Serious: No
  Sender: FDA-Public Use
  Company Number: GB-SIGA Technologies, Inc.-2138014

PATIENT
  Age: 55 Year
  Sex: Male

DRUGS (25)
  1. TPOXX [Suspect]
     Active Substance: TECOVIRIMAT
     Indication: Monkeypox
     Route: 048
     Dates: start: 20220526, end: 20220610
  2. ACYCLOVIR [Concomitant]
     Active Substance: ACYCLOVIR
     Route: 048
  3. BISOPROLOL. [Concomitant]
     Active Substance: BISOPROLOL FUMARATE
     Route: 048
  4. AMITRIPTYLINE HYDROCHLORIDE [Concomitant]
     Active Substance: AMITRIPTYLINE HYDROCHLORIDE
     Route: 048
  5. CEFTRIAXONE [Concomitant]
     Active Substance: CEFTRIAXONE
     Route: 042
  6. AMOXICILLIN [Concomitant]
     Active Substance: AMOXICILLIN
     Route: 048
     Dates: start: 20220529, end: 20220605
  7. DAPAGLIFLOZIN [Concomitant]
     Active Substance: DAPAGLIFLOZIN
     Route: 048
  8. EDOXABAN [Concomitant]
     Active Substance: EDOXABAN
     Route: 048
  9. EMTRICITABINE AND TENOFOVIR DISOPROXIL FUMARATE [Concomitant]
     Active Substance: EMTRICITABINE\TENOFOVIR DISOPROXIL FUMARATE
     Route: 048
  10. GABAPENTIN [Concomitant]
     Active Substance: GABAPENTIN
     Route: 048
  11. INSULIN ASPART PROTAMINE AND INSULIN ASPART [Concomitant]
     Active Substance: INSULIN ASPART
     Route: 058
  12. INSULIN GLARGINE [Concomitant]
     Active Substance: INSULIN GLARGINE
     Route: 058
  13. LANSOPRAZOLE [Concomitant]
     Active Substance: LANSOPRAZOLE
     Route: 048
  14. METFORMIN [Concomitant]
     Active Substance: METFORMIN HYDROCHLORIDE
     Route: 048
  15. METRONIDAZOLE [Concomitant]
     Active Substance: METRONIDAZOLE
     Route: 048
     Dates: start: 20220526, end: 20220531
  16. MIRTAZAPINE [Concomitant]
     Active Substance: MIRTAZAPINE
     Route: 048
  17. NICOTINE TRANSDERMAL SYSTEM [Concomitant]
     Active Substance: NICOTINE
     Route: 062
     Dates: start: 20220527, end: 20220602
  18. OMEGA-3-ACID ETHYL ESTERS [Concomitant]
     Active Substance: OMEGA-3-ACID ETHYL ESTERS
     Route: 048
  19. ACETAMINOPHEN [Concomitant]
     Active Substance: ACETAMINOPHEN
     Route: 048
     Dates: start: 20220526, end: 20220602
  20. QUININE SULFATE [Concomitant]
     Active Substance: QUININE SULFATE
     Route: 048
  21. RALTEGRAVIR [Concomitant]
     Active Substance: RALTEGRAVIR
     Route: 048
  22. ROSUVASTATIN [Concomitant]
     Active Substance: ROSUVASTATIN
     Route: 048
  23. SACUBITRIL\VALSARTAN [Concomitant]
     Active Substance: SACUBITRIL\VALSARTAN
     Route: 048
  24. SITAGLIPTIN [Concomitant]
     Active Substance: SITAGLIPTIN
     Route: 048
  25. TRAMADOL [Concomitant]
     Active Substance: TRAMADOL
     Route: 048
     Dates: start: 20220527, end: 20220601

REACTIONS (2)
  - Gastrooesophageal reflux disease [Recovered/Resolved]
  - Vomiting [Recovered/Resolved]

NARRATIVE: CASE EVENT DATE: 20220528
